FAERS Safety Report 7004232-8 (Version None)
Quarter: 2010Q3

REPORT INFORMATION
  Report Type: 
  Country: None (occurrence: None)
  Receive Date: 20100920
  Receipt Date: 20100219
  Transmission Date: 20110219
  Serious: No
  Sender: FDA-Public Use
  Company Number: US-WYE-H13768910

PATIENT
  Sex: Female
  Weight: 59.02 kg

DRUGS (5)
  1. PRISTIQ [Suspect]
     Route: 048
     Dates: start: 20090701
  2. ACETYLSALICYLIC ACID [Concomitant]
  3. PROVERA [Concomitant]
  4. WELLBUTRIN [Concomitant]
  5. ESTRATEST [Concomitant]

REACTIONS (1)
  - ALOPECIA [None]
